FAERS Safety Report 5320311-5 (Version None)
Quarter: 2007Q1

REPORT INFORMATION
  Report Type: 
  Country: None (occurrence: None)
  Receive Date: 20070209
  Receipt Date: 20060320
  Transmission Date: 20070707
  Serious: Yes (Hospitalization)
  Sender: FDA-Public Use
  Company Number: 2006008739

PATIENT
  Age: 80 Year
  Sex: Female

DRUGS (6)
  1. DAYPRO [Suspect]
     Indication: OSTEOARTHRITIS
     Dosage: 1200 MG (600 MG,2 IN 1 D),ORAL
     Route: 048
     Dates: start: 19970101, end: 20051101
  2. OXYBUTYNIN CHLORIDE [Suspect]
     Indication: URINARY INCONTINENCE
     Dosage: (3.9 MG,1 IN 2 WK), TRANSDERMAL
     Route: 062
     Dates: start: 20030101
  3. IBUPROFEN [Suspect]
     Indication: OSTEOARTHRITIS
     Dosage: ORAL
     Route: 048
     Dates: start: 20050901, end: 20051101
  4. DITROPAN XL [Concomitant]
  5. ROBINUL (GLYCOPYRRONIUM BROMIDE) [Concomitant]
  6. PROCHLORPERAZINE MALEATE [Concomitant]

REACTIONS (5)
  - COLITIS ULCERATIVE [None]
  - CONDITION AGGRAVATED [None]
  - DRUG INEFFECTIVE [None]
  - HAEMATOCHEZIA [None]
  - IRRITABLE BOWEL SYNDROME [None]
